FAERS Safety Report 11769669 (Version 1)
Quarter: 2015Q4

REPORT INFORMATION
  Report Type: Spontaneous
  Country: FR (occurrence: FR)
  Receive Date: 20151123
  Receipt Date: 20151123
  Transmission Date: 20160304
  Serious: Yes (Other)
  Sender: FDA-Public Use
  Company Number: FR-PFIZER INC-2015392892

PATIENT
  Age: 31 Year
  Sex: Female

DRUGS (3)
  1. TERCIAN /00759301/ [Suspect]
     Active Substance: CYAMEMAZINE
     Indication: MAJOR DEPRESSION
     Dosage: 25 MG, 1X/DAY AT BEDTIME
     Route: 048
  2. EFFEXOR [Suspect]
     Active Substance: VENLAFAXINE HYDROCHLORIDE
     Indication: MAJOR DEPRESSION
     Dosage: 75 MG, 1X/DAY AT BEDTIME
     Route: 048
  3. XEROQUEL [Suspect]
     Active Substance: QUETIAPINE FUMARATE
     Indication: MAJOR DEPRESSION
     Dosage: 300 MG, 1X/DAY AT BEDTIME
     Route: 048

REACTIONS (1)
  - Abortion spontaneous [Recovered/Resolved]

NARRATIVE: CASE EVENT DATE: 20151103
